FAERS Safety Report 17572810 (Version 1)
Quarter: 2020Q1

REPORT INFORMATION
  Report Type: Spontaneous
  Country: US (occurrence: US)
  Receive Date: 20200323
  Receipt Date: 20200323
  Transmission Date: 20200409
  Serious: No
  Sender: FDA-Public Use
  Company Number: None

PATIENT
  Age: 77 Year
  Sex: Male

DRUGS (3)
  1. HEPARIN (HEPARIN NA 5000UNT/ML INJ) [Suspect]
     Active Substance: HEPARIN SODIUM
     Indication: DEEP VEIN THROMBOSIS
     Route: 058
     Dates: start: 20190823, end: 20190823
  2. HEPARIN (HEPARIN NA 5000UNT/ML INJ) [Suspect]
     Active Substance: HEPARIN SODIUM
     Indication: ACUTE CORONARY SYNDROME
     Route: 058
     Dates: start: 20190823, end: 20190823
  3. HEPARIN (HEPARIN NA 5000UNT/ML INJ) [Suspect]
     Active Substance: HEPARIN SODIUM
     Indication: PULMONARY EMBOLISM
     Route: 058
     Dates: start: 20190823, end: 20190823

REACTIONS (3)
  - Heparin-induced thrombocytopenia [None]
  - Acute kidney injury [None]
  - Right ventricular dysfunction [None]

NARRATIVE: CASE EVENT DATE: 20190823
